FAERS Safety Report 4432329-5 (Version None)
Quarter: 2004Q3

REPORT INFORMATION
  Report Type: 
  Country: None (occurrence: None)
  Receive Date: 20040825
  Receipt Date: 20030717
  Transmission Date: 20050211
  Serious: Yes (Hospitalization)
  Sender: FDA-Public Use
  Company Number: GB-AMGEN-UK042601

PATIENT
  Sex: Female
  Weight: 60 kg

DRUGS (7)
  1. KINERET [Suspect]
     Indication: RHEUMATOID ARTHRITIS
     Dates: start: 20020801, end: 20020901
  2. VIOXX [Concomitant]
  3. ASPIRIN [Concomitant]
  4. AMITRIPTYLINE HCL [Concomitant]
  5. FOSAMAX [Concomitant]
  6. LOSEC [Concomitant]
  7. ADALIMUMAB [Concomitant]

REACTIONS (1)
  - LOWER RESPIRATORY TRACT INFECTION [None]
